FAERS Safety Report 11245742 (Version 5)
Quarter: 2018Q3

REPORT INFORMATION
  Report Type: Spontaneous
  Country: US (occurrence: US)
  Receive Date: 20150707
  Receipt Date: 20180813
  Transmission Date: 20181010
  Serious: Yes (Hospitalization, Other)
  Sender: FDA-Public Use
  Company Number: US-DSJP-DSU-2015-120641

PATIENT

DRUGS (4)
  1. BENICAR HCT [Suspect]
     Active Substance: HYDROCHLOROTHIAZIDE\OLMESARTAN MEDOXOMIL
     Indication: HYPERTENSION
     Dosage: 40/25 MG, QD
     Route: 048
     Dates: start: 20070414, end: 2012
  2. BENICAR [Suspect]
     Active Substance: OLMESARTAN MEDOXOMIL
     Dosage: 20MG HALF TABLET
     Dates: start: 20080118
  3. BENICAR HCT [Suspect]
     Active Substance: HYDROCHLOROTHIAZIDE\OLMESARTAN MEDOXOMIL
     Dosage: UNK
  4. BENICAR [Suspect]
     Active Substance: OLMESARTAN MEDOXOMIL
     Indication: PRODUCT USED FOR UNKNOWN INDICATION
     Dosage: 20 MG
     Dates: start: 20060415, end: 20080118

REACTIONS (13)
  - Diverticulitis [Unknown]
  - Hepatic steatosis [Unknown]
  - Pancreatitis [Not Recovered/Not Resolved]
  - Diverticulum [Not Recovered/Not Resolved]
  - Umbilical hernia [Recovered/Resolved]
  - Haemorrhoids [Unknown]
  - Large intestine polyp [Unknown]
  - Nephrolithiasis [Unknown]
  - Anaemia vitamin B12 deficiency [Unknown]
  - Abdominal hernia [Recovered/Resolved]
  - Sprue-like enteropathy [Not Recovered/Not Resolved]
  - Rectal polyp [Unknown]
  - Drug administration error [Unknown]

NARRATIVE: CASE EVENT DATE: 2006
